FAERS Safety Report 22194868 (Version 3)
Quarter: 2023Q4

REPORT INFORMATION
  Report Type: Report from Study
  Country: CA (occurrence: CA)
  Receive Date: 20230411
  Receipt Date: 20231020
  Transmission Date: 20240109
  Serious: Yes (Other)
  Sender: FDA-Public Use
  Company Number: CA-CELLTRION INC.-2023CA006712

PATIENT

DRUGS (7)
  1. RITUXIMAB [Suspect]
     Active Substance: RITUXIMAB
     Indication: Granulomatosis with polyangiitis
     Dosage: 612.4 MILLIGRAM 4 EVERY 1 WEEKS
     Route: 042
  2. RITUXIMAB [Suspect]
     Active Substance: RITUXIMAB
     Dosage: 612.4 MILLIGRAM
     Route: 042
  3. RITUXIMAB [Suspect]
     Active Substance: RITUXIMAB
     Dosage: 612.4 MILLIGRAM
     Route: 042
  4. RITUXIMAB [Suspect]
     Active Substance: RITUXIMAB
     Dosage: 500 MILLIGRAM
     Route: 042
  5. ACETAMINOPHEN [Concomitant]
     Active Substance: ACETAMINOPHEN
     Indication: Product used for unknown indication
     Dosage: 650.0 MILLIGRAM
     Route: 048
  6. DIPHENHYDRAMINE HYDROCHLORIDE [Concomitant]
     Active Substance: DIPHENHYDRAMINE HYDROCHLORIDE
     Indication: Product used for unknown indication
     Dosage: 50.0 MILLIGRAM
     Route: 048
  7. METHYLPREDNISOLONE [Concomitant]
     Active Substance: METHYLPREDNISOLONE
     Indication: Product used for unknown indication
     Dosage: 100 MILLIGRAM
     Route: 042

REACTIONS (10)
  - Anxiety [Recovering/Resolving]
  - Nervousness [Recovering/Resolving]
  - Malaise [Recovering/Resolving]
  - Abdominal discomfort [Recovering/Resolving]
  - Liver disorder [Recovering/Resolving]
  - Blood pressure increased [Recovering/Resolving]
  - Peripheral swelling [Recovering/Resolving]
  - Joint swelling [Recovering/Resolving]
  - Hypertension [Recovering/Resolving]
  - Intentional product use issue [Unknown]
